FAERS Safety Report 4434213-X (Version None)
Quarter: 2004Q3

REPORT INFORMATION
  Report Type: 
  Country: None (occurrence: None)
  Receive Date: 20040825
  Receipt Date: 20040816
  Transmission Date: 20050211
  Serious: Yes (Other)
  Sender: FDA-Public Use
  Company Number: 2004229270DE

PATIENT
  Sex: Female
  Weight: 68 kg

DRUGS (1)
  1. CLINDAMYCIN HYDROCHLORIDE [Suspect]

REACTIONS (2)
  - ABORTION MISSED [None]
  - DRUG EXPOSURE DURING PREGNANCY [None]
